FAERS Safety Report 10065402 (Version 1)
Quarter: 2014Q2

REPORT INFORMATION
  Report Type: Spontaneous
  Country: US (occurrence: US)
  Receive Date: 20140408
  Receipt Date: 20140408
  Transmission Date: 20141212
  Serious: Yes (Other)
  Sender: FDA-Public Use
  Company Number: US-BAYER-2014-052178

PATIENT
  Sex: Female

DRUGS (1)
  1. BAYER EXTRA STRENGTH BACK + BODY PAIN [Suspect]
     Indication: BACK PAIN
     Dosage: UNK
     Route: 048
     Dates: start: 20140327, end: 20140403

REACTIONS (3)
  - Hearing impaired [Not Recovered/Not Resolved]
  - Ear discomfort [Not Recovered/Not Resolved]
  - Incorrect dose administered [None]
